FAERS Safety Report 6915760-5 (Version None)
Quarter: 2010Q3

REPORT INFORMATION
  Report Type: 
  Country: None (occurrence: None)
  Receive Date: 20100810
  Receipt Date: 20091224
  Transmission Date: 20110219
  Serious: No
  Sender: FDA-Public Use
  Company Number: A0612895A

PATIENT
  Sex: Female

DRUGS (3)
  1. PAROXETINE HCL [Suspect]
     Indication: PRODUCT USED FOR UNKNOWN INDICATION
     Route: 065
  2. WELLBUTRIN [Suspect]
     Indication: DEPRESSION
     Dosage: 150MG PER DAY
     Route: 048
  3. PAXIL [Suspect]
     Indication: DEPRESSION
     Route: 048

REACTIONS (6)
  - DRUG INEFFECTIVE [None]
  - FATIGUE [None]
  - HYPERSENSITIVITY [None]
  - OROPHARYNGEAL PAIN [None]
  - PRURITUS [None]
  - URTICARIA [None]
